FAERS Safety Report 11883178 (Version 3)
Quarter: 2016Q2

REPORT INFORMATION
  Report Type: Report from Study
  Country: CO (occurrence: CO)
  Receive Date: 20151231
  Receipt Date: 20160506
  Transmission Date: 20160815
  Serious: Yes (Other)
  Sender: FDA-Public Use
  Company Number: CO-REGENERON PHARMACEUTICALS, INC.-2015-15243

PATIENT

DRUGS (7)
  1. AMLODIPINE [Concomitant]
     Active Substance: AMLODIPINE BESYLATE
  2. EYLEA [Suspect]
     Active Substance: AFLIBERCEPT
     Indication: INTRAOCULAR PRESSURE INCREASED
  3. EYLEA [Suspect]
     Active Substance: AFLIBERCEPT
     Indication: PROPHYLAXIS
  4. LOSARTAN. [Concomitant]
     Active Substance: LOSARTAN
  5. METOPROLOL. [Concomitant]
     Active Substance: METOPROLOL
  6. EYE DROPS [Concomitant]
     Active Substance: TETRAHYDROZOLINE HYDROCHLORIDE
  7. EYLEA [Suspect]
     Active Substance: AFLIBERCEPT
     Indication: NEOVASCULAR AGE-RELATED MACULAR DEGENERATION
     Dosage: 2 MG, QD
     Dates: start: 20131201, end: 20140215

REACTIONS (5)
  - Product use issue [Unknown]
  - Blood glucose increased [Recovering/Resolving]
  - Blood pressure increased [Unknown]
  - Blood pressure increased [Recovering/Resolving]
  - Procedural hypertension [Not Recovered/Not Resolved]

NARRATIVE: CASE EVENT DATE: 20140301
